FAERS Safety Report 5458166-0 (Version None)
Quarter: 2007Q3

REPORT INFORMATION
  Report Type: 
  Country: None (occurrence: None)
  Receive Date: 20070919
  Receipt Date: 20070911
  Transmission Date: 20080115
  Serious: Yes (Death, Hospitalization)
  Sender: FDA-Public Use
  Company Number: FR-JNJFOC-20070902084

PATIENT
  Age: 58 Year
  Sex: Male

DRUGS (3)
  1. REMICADE [Suspect]
     Route: 042
  2. REMICADE [Suspect]
     Indication: ANKYLOSING SPONDYLITIS
     Route: 042
  3. ACETAMINOPHEN [Concomitant]

REACTIONS (4)
  - DEATH [None]
  - PAIN [None]
  - SEPTIC ARTHRITIS STAPHYLOCOCCAL [None]
  - SEPTIC SHOCK [None]
